FAERS Safety Report 8848238 (Version 1)
Quarter: 2012Q4

REPORT INFORMATION
  Report Type: 
  Country: US (occurrence: US)
  Receive Date: 20121018
  Receipt Date: 20121018
  Transmission Date: 20130627
  Serious: Yes (Other)
  Sender: FDA-Public Use
  Company Number: US-ROCHE-1139694

PATIENT
  Sex: Male

DRUGS (4)
  1. PROTROPIN [Suspect]
     Indication: HYPOPITUITARISM
     Dosage: 0.18 cc (0.247 mg/kg/week)
     Route: 058
     Dates: start: 19971215
  2. PROTROPIN [Suspect]
     Dosage: 0.21 cc (0.3 mg/kg/week)
     Route: 058
     Dates: start: 19991209
  3. PROTROPIN [Suspect]
     Dosage: 0.26 cc
     Route: 058
     Dates: start: 20010219
  4. SYNTHROID [Concomitant]
     Route: 065

REACTIONS (7)
  - Tympanic membrane perforation [Recovered/Resolved]
  - Bronchitis [Unknown]
  - Hyperkeratosis [Unknown]
  - Nasopharyngitis [Unknown]
  - Pain [Unknown]
  - Arthralgia [Unknown]
  - Pain in extremity [Unknown]
